FAERS Safety Report 5748873-4 (Version None)
Quarter: 2008Q2

REPORT INFORMATION
  Report Type: 
  Country: None (occurrence: None)
  Receive Date: 20080522
  Receipt Date: 20080506
  Transmission Date: 20081010
  Serious: Yes (Hospitalization)
  Sender: FDA-Public Use
  Company Number: 2008US000704

PATIENT
  Age: 50 Year
  Sex: Male
  Weight: 71.2 kg

DRUGS (24)
  1. PROGRAF [Suspect]
     Indication: LIVER TRANSPLANT
     Dosage: 1 MG, BID, ORAL; 8 MG, BID, ORAL
     Route: 048
     Dates: start: 20080217, end: 20080222
  2. PROGRAF [Suspect]
     Indication: LIVER TRANSPLANT
     Dosage: 1 MG, BID, ORAL; 8 MG, BID, ORAL
     Route: 048
     Dates: start: 20080222, end: 20080227
  3. NEORAL [Suspect]
     Indication: DRUG USE FOR UNKNOWN INDICATION
     Dosage: 100 MG, BID, ORAL
     Route: 048
     Dates: start: 20080229
  4. COLACE (DOCUSATE SODIUM) FORMULATION [Concomitant]
  5. NEXIUM [Concomitant]
  6. MULTIVITAMINS (ERGOCALCIFEROL, FOLIC ACID, NICOTINAMIDE, PANTHENOL, TH [Concomitant]
  7. CELLCEPT [Concomitant]
  8. MYCOSTATIN [Concomitant]
  9. PREDNISONE TAB [Concomitant]
  10. SEPTRA [Concomitant]
  11. VICODIN [Concomitant]
  12. ALBUTEROL (SALBUTAMOL SULFATE) INHALATION [Concomitant]
  13. ATROVENT [Concomitant]
  14. MAGNESIUM OXIDE (MAGNESIUM OXIDE) [Concomitant]
  15. ZOVIRAX [Concomitant]
  16. SIROLIMUS (SIROLIMUS) [Concomitant]
  17. INSULIN (INSULIN HUMAN) [Concomitant]
  18. LACTULOSE [Concomitant]
  19. LASIX [Concomitant]
  20. ALDACTONE [Concomitant]
  21. PROPRANOLOL [Concomitant]
  22. BACTRIM [Concomitant]
  23. PRILOSEC [Concomitant]
  24. MAGNESIUM GLUCONATE (MAGNESIUM GLUCONATE) [Concomitant]

REACTIONS (17)
  - APHASIA [None]
  - APRAXIA [None]
  - BLOOD ALKALINE PHOSPHATASE INCREASED [None]
  - BLOOD BILIRUBIN INCREASED [None]
  - BLOOD GLUCOSE INCREASED [None]
  - BLOOD MAGNESIUM DECREASED [None]
  - CEREBELLAR SYNDROME [None]
  - CEREBRAL ATROPHY [None]
  - DYSARTHRIA [None]
  - HAEMATOCRIT DECREASED [None]
  - HAEMOGLOBIN DECREASED [None]
  - HEMIPARESIS [None]
  - NECROSIS [None]
  - NEUROTOXICITY [None]
  - PARALYSIS [None]
  - PLATELET COUNT INCREASED [None]
  - SINUSITIS [None]
